FAERS Safety Report 17906666 (Version 1)
Quarter: 2020Q2

REPORT INFORMATION
  Report Type: Spontaneous
  Country: US (occurrence: US)
  Receive Date: 20200616
  Receipt Date: 20200616
  Transmission Date: 20200714
  Serious: Yes (Other)
  Sender: FDA-Public Use
  Company Number: US-ROCHE-2391823

PATIENT
  Sex: Female

DRUGS (1)
  1. ACTEMRA [Suspect]
     Active Substance: TOCILIZUMAB
     Indication: ILL-DEFINED DISORDER
     Route: 058
     Dates: start: 20190528

REACTIONS (4)
  - Mouth ulceration [Unknown]
  - Off label use [Unknown]
  - Urinary tract infection [Unknown]
  - Intentional product use issue [Unknown]
